FAERS Safety Report 9419269 (Version 1)
Quarter: 2013Q3

REPORT INFORMATION
  Report Type: Spontaneous
  Country: US (occurrence: None)
  Receive Date: 20130724
  Receipt Date: 20130724
  Transmission Date: 20140515
  Serious: Yes (Death)
  Sender: FDA-Public Use
  Company Number: None

PATIENT
  Age: 78 Year
  Sex: Female
  Weight: 68 kg

DRUGS (8)
  1. XARELTO [Suspect]
     Indication: ATRIAL FIBRILLATION
     Dosage: 20 MG PO DAILY?(LAST TAKEN 7-14-13 AT 0900)
     Route: 048
     Dates: end: 20130714
  2. PRAVASTATIN [Concomitant]
  3. CLONIDINE [Concomitant]
  4. ASA [Concomitant]
  5. LASIX [Concomitant]
  6. METFORMIN [Concomitant]
  7. OMEPRAZOLE [Concomitant]
  8. DULERA [Concomitant]

REACTIONS (18)
  - Pneumonia [None]
  - Cognitive disorder [None]
  - Depressed level of consciousness [None]
  - Posture abnormal [None]
  - Heart rate decreased [None]
  - Heart rate increased [None]
  - Cardio-respiratory arrest [None]
  - Haemoglobin decreased [None]
  - Blood lactic acid increased [None]
  - Blood potassium increased [None]
  - Blood calcium decreased [None]
  - Haematuria [None]
  - International normalised ratio increased [None]
  - Puncture site haemorrhage [None]
  - Back pain [None]
  - Pleural effusion [None]
  - Pericardial effusion [None]
  - Electrocardiogram ST segment abnormal [None]
